FAERS Safety Report 12470122 (Version 2)
Quarter: 2016Q3

REPORT INFORMATION
  Report Type: Spontaneous
  Country: US (occurrence: US)
  Receive Date: 20160616
  Receipt Date: 20160823
  Transmission Date: 20161109
  Serious: Yes (Other)
  Sender: FDA-Public Use
  Company Number: US-ASTRAZENECA-2016SE46083

PATIENT
  Age: 27404 Day
  Sex: Female
  Weight: 56.7 kg

DRUGS (10)
  1. TUDORZA PRESSAIR [Suspect]
     Active Substance: ACLIDINIUM BROMIDE
     Indication: CHRONIC OBSTRUCTIVE PULMONARY DISEASE
     Route: 055
  2. PROAIR HFA [Concomitant]
     Active Substance: ALBUTEROL SULFATE
     Indication: CHRONIC OBSTRUCTIVE PULMONARY DISEASE
     Dosage: 90.0UG UNKNOWN
     Route: 055
  3. LOSARTAN. [Concomitant]
     Active Substance: LOSARTAN
     Indication: HYPERTENSION
     Dosage: 100.0MG UNKNOWN
     Route: 048
  4. SYMBICORT [Suspect]
     Active Substance: BUDESONIDE\FORMOTEROL FUMARATE DIHYDRATE
     Indication: CHRONIC OBSTRUCTIVE PULMONARY DISEASE
     Dosage: 160/4.5 MCG TWO PUFFS TWICE A DAY
     Route: 055
  5. VITAMIND [Concomitant]
  6. ATENOLOL. [Suspect]
     Active Substance: ATENOLOL
     Indication: CHRONIC OBSTRUCTIVE PULMONARY DISEASE
     Dosage: 50.0MG UNKNOWN
     Route: 048
  7. ASPIRIN. [Concomitant]
     Active Substance: ASPIRIN
  8. MULTIVITAMIN [Concomitant]
     Active Substance: VITAMINS
  9. CALCIUM [Concomitant]
     Active Substance: CALCIUM
  10. LORAZEPAM. [Concomitant]
     Active Substance: LORAZEPAM
     Indication: ANXIETY
     Dosage: 1.0MG UNKNOWN
     Route: 048

REACTIONS (5)
  - Syncope [Recovered/Resolved]
  - Product quality issue [Unknown]
  - Hypertension [Not Recovered/Not Resolved]
  - Product use issue [Unknown]
  - Headache [Unknown]

NARRATIVE: CASE EVENT DATE: 20160201
